FAERS Safety Report 8343218-8 (Version None)
Quarter: 2012Q2

REPORT INFORMATION
  Report Type: 
  Country: None (occurrence: None)
  Receive Date: 20120508
  Receipt Date: 20120426
  Transmission Date: 20120825
  Serious: Yes (Other)
  Sender: FDA-Public Use
  Company Number: TW-BAYER-2012-040602

PATIENT
  Age: 36 Year
  Sex: Female

DRUGS (1)
  1. YASMIN [Suspect]

REACTIONS (7)
  - DIZZINESS [None]
  - CONSTIPATION [None]
  - BODY TEMPERATURE INCREASED [None]
  - DECREASED APPETITE [None]
  - FLATULENCE [None]
  - SUICIDE ATTEMPT [None]
  - DYSPNOEA [None]
